FAERS Safety Report 5667685-3 (Version None)
Quarter: 2008Q1

REPORT INFORMATION
  Report Type: 
  Country: None (occurrence: None)
  Receive Date: 20080315
  Receipt Date: 20080204
  Transmission Date: 20080703
  Serious: Yes (Hospitalization)
  Sender: FDA-Public Use
  Company Number: US-ABBOTT-08P-163-0436875-00

PATIENT
  Sex: Female
  Weight: 52.664 kg

DRUGS (2)
  1. HUMIRA [Suspect]
     Indication: CROHN'S DISEASE
     Route: 058
  2. HUMIRA [Suspect]
     Dates: end: 20060101

REACTIONS (3)
  - CROHN'S DISEASE [None]
  - FIBROMYALGIA [None]
  - PROCEDURAL COMPLICATION [None]
